FAERS Safety Report 7562711-9 (Version None)
Quarter: 2011Q2

REPORT INFORMATION
  Report Type: 
  Country: None (occurrence: None)
  Receive Date: 20110615
  Receipt Date: 20110606
  Transmission Date: 20111010
  Serious: Yes (Other)
  Sender: FDA-Public Use
  Company Number: 2011SP016945

PATIENT
  Age: 64 Year
  Sex: Female

DRUGS (4)
  1. ABILIFY [Suspect]
     Indication: PARANOIA
     Dosage: 10 MG; QD; PO, 5 MG; QD; PO
     Route: 048
     Dates: start: 20070101, end: 20110101
  2. ABILIFY [Suspect]
     Indication: PARANOIA
     Dosage: 10 MG; QD; PO, 5 MG; QD; PO
     Route: 048
     Dates: start: 20110101
  3. CYMBALTA [Suspect]
     Indication: DEPRESSION
     Dosage: 120 MG; QD; PO
     Route: 048
     Dates: start: 20060101
  4. MIRTAZAPINE [Suspect]
     Indication: DEPRESSION
     Dosage: 30 MG; HS; PO
     Route: 048
     Dates: start: 20080101

REACTIONS (1)
  - PARKINSONISM [None]
